FAERS Safety Report 16320016 (Version 1)
Quarter: 2019Q2

REPORT INFORMATION
  Report Type: Other
  Country: HU (occurrence: HU)
  Receive Date: 20190516
  Receipt Date: 20190516
  Transmission Date: 20190711
  Serious: Yes (Other)
  Sender: FDA-Public Use
  Company Number: HU-APOTEX-2019AP014031

PATIENT
  Age: 54 Year
  Sex: Male

DRUGS (3)
  1. NAPROXEN. [Suspect]
     Active Substance: NAPROXEN
     Indication: GOUTY ARTHRITIS
     Dosage: 550 MG, BID
     Route: 065
  2. PERINDOPRIL [Suspect]
     Active Substance: PERINDOPRIL
     Indication: PRODUCT USED FOR UNKNOWN INDICATION
     Dosage: UNK
     Route: 065
  3. ACETYLSALICYLIC ACID [Suspect]
     Active Substance: ASPIRIN
     Indication: PRODUCT USED FOR UNKNOWN INDICATION
     Dosage: UNK
     Route: 065

REACTIONS (8)
  - Balance disorder [Recovered/Resolved]
  - Dizziness [Recovered/Resolved]
  - Gouty arthritis [Recovered/Resolved]
  - Swelling [Recovered/Resolved]
  - Brain stem syndrome [Recovered/Resolved]
  - Nausea [Recovered/Resolved]
  - Hyperthermia [Recovered/Resolved]
  - Pain [Recovered/Resolved]
